FAERS Safety Report 9349215 (Version 1)
Quarter: 2013Q2

REPORT INFORMATION
  Report Type: Spontaneous
  Country: JP (occurrence: JP)
  Receive Date: 20130614
  Receipt Date: 20130614
  Transmission Date: 20140414
  Serious: Yes (Death, Hospitalization, Other)
  Sender: FDA-Public Use
  Company Number: JP-ASTELLAS-2013JP006713

PATIENT
  Age: 71 Year
  Sex: Female
  Weight: 36 kg

DRUGS (15)
  1. PROGRAF [Suspect]
     Indication: RHEUMATOID ARTHRITIS
     Dosage: 1 MG, UNKNOWN/D
     Route: 048
     Dates: end: 20130426
  2. REMICADE [Suspect]
     Indication: RHEUMATOID ARTHRITIS
     Dosage: UNK
     Route: 042
  3. REMICADE [Suspect]
     Dosage: 5.5 MG/KG, UNKNOWN/D
     Route: 042
     Dates: start: 20130322
  4. METOLATE [Suspect]
     Indication: RHEUMATOID ARTHRITIS
     Dosage: 8 MG, WEEKLY
     Route: 048
     Dates: end: 20130426
  5. PREDONINE /00016201/ [Suspect]
     Indication: RHEUMATOID ARTHRITIS
     Dosage: 7.5 MG, UNKNOWN/D
     Route: 048
     Dates: end: 20130429
  6. CRESTOR [Concomitant]
     Indication: HYPERLIPIDAEMIA
     Dosage: 2.5 MG, UNKNOWN/D
     Route: 048
  7. GASTER D [Concomitant]
     Indication: GASTROOESOPHAGEAL REFLUX DISEASE
     Dosage: 20 MG, UNKNOWN/D
     Route: 048
  8. GASTER D [Concomitant]
     Dosage: 10 MG, UNKNOWN/D
     Route: 048
  9. BONALON [Concomitant]
     Indication: OSTEOPOROSIS
     Dosage: 35 MG, WEEKLY
     Route: 048
  10. EDIROL [Concomitant]
     Indication: OSTEOPOROSIS
     Dosage: 0.75 UG, UNKNOWN/D
     Route: 065
  11. FOLIAMIN [Concomitant]
     Indication: FOLATE DEFICIENCY
     Dosage: 5 MG, WEEKLY
     Route: 048
  12. CALCIUM LACTATE [Concomitant]
     Indication: OSTEOPOROSIS
     Dosage: 3 G, UNKNOWN/D
     Route: 048
  13. CALCIUM LACTATE [Concomitant]
     Dosage: 1 G, UNKNOWN/D
     Route: 048
  14. NEOPHAGEN                          /00518801/ [Concomitant]
     Indication: PROPHYLAXIS
     Dosage: 20 ML, UNKNOWN/D
     Route: 042
     Dates: end: 20130420
  15. PENICILLIN                         /00000903/ [Concomitant]
     Indication: PNEUMONIA BACTERIAL
     Dosage: 2 G, Q8 HOURS
     Route: 042
     Dates: end: 20130430

REACTIONS (6)
  - Interstitial lung disease [Fatal]
  - Pneumocystis jirovecii pneumonia [Fatal]
  - Anaemia [Unknown]
  - Altered state of consciousness [Unknown]
  - Pleural effusion [Unknown]
  - Blood pressure increased [Recovered/Resolved]
